FAERS Safety Report 14321269 (Version 1)
Quarter: 2017Q4

REPORT INFORMATION
  Report Type: Spontaneous
  Country: CA (occurrence: CA)
  Receive Date: 20171223
  Receipt Date: 20171223
  Transmission Date: 20180321
  Serious: Yes (Other)
  Sender: FDA-Public Use
  Company Number: PHHY2017CA182771

PATIENT
  Age: 92 Year
  Sex: Male

DRUGS (4)
  1. OLANZAPINE. [Suspect]
     Active Substance: OLANZAPINE
     Dosage: 2.5 MG, QD
     Route: 065
  2. OLANZAPINE. [Suspect]
     Active Substance: OLANZAPINE
     Indication: MAJOR DEPRESSION
     Dosage: 2.5 MG, QD
     Route: 065
  3. SERTRALINE [Concomitant]
     Active Substance: SERTRALINE HYDROCHLORIDE
     Indication: MAJOR DEPRESSION
     Route: 065
  4. OLANZAPINE. [Suspect]
     Active Substance: OLANZAPINE
     Dosage: 5 MG, QD
     Route: 065

REACTIONS (13)
  - Tremor [Unknown]
  - Hallucination, visual [Recovered/Resolved]
  - Orthostatic hypotension [Unknown]
  - Depression [Recovering/Resolving]
  - Delusion [Recovered/Resolved]
  - Parkinsonism [Recovering/Resolving]
  - Gait disturbance [Unknown]
  - Muscular weakness [Unknown]
  - Product use in unapproved indication [Unknown]
  - Abnormal dreams [Unknown]
  - Cognitive disorder [Recovering/Resolving]
  - Mobility decreased [Unknown]
  - Dementia with Lewy bodies [Unknown]
